FAERS Safety Report 8764127 (Version 7)
Quarter: 2014Q2

REPORT INFORMATION
  Report Type: Spontaneous
  Country: US (occurrence: US)
  Receive Date: 20120831
  Receipt Date: 20140409
  Transmission Date: 20141212
  Serious: Yes (Hospitalization, Disabling, Other)
  Sender: FDA-Public Use
  Company Number: US-009507513-1205USA01675

PATIENT
  Sex: Female
  Weight: 91.16 kg

DRUGS (5)
  1. FOSAMAX [Suspect]
     Indication: OSTEOPOROSIS
     Dosage: 70 MG, UNK
     Route: 048
     Dates: start: 2005, end: 2011
  2. FOSAMAX [Suspect]
     Indication: BONE DENSITY DECREASED
  3. FOSAMAX [Suspect]
     Indication: OSTEOPOROSIS
     Dosage: UNK
     Route: 048
  4. ZOLOFT [Concomitant]
     Indication: DEPRESSION
     Dosage: UNK
     Dates: start: 1989, end: 2009
  5. VITAMINS (UNSPECIFIED) [Concomitant]
     Dosage: 1 QD

REACTIONS (51)
  - Femur fracture [Not Recovered/Not Resolved]
  - Hip fracture [Recovered/Resolved]
  - Intramedullary rod insertion [Not Recovered/Not Resolved]
  - Sepsis [Unknown]
  - Pancytopenia [Unknown]
  - Fall [Unknown]
  - Thrombocytopenia [Unknown]
  - Low turnover osteopathy [Not Recovered/Not Resolved]
  - Lung neoplasm malignant [Unknown]
  - Small cell lung cancer [Unknown]
  - Metastases to bone [Unknown]
  - Vocal cord paralysis [Unknown]
  - Vertebroplasty [Unknown]
  - Unresponsive to stimuli [Recovered/Resolved]
  - Cerebral infarction [Unknown]
  - Acute respiratory failure [Unknown]
  - Transfusion reaction [Unknown]
  - Renal failure acute [Unknown]
  - Pleural effusion [Unknown]
  - Thrombosis [Unknown]
  - Depression [Unknown]
  - Anxiety [Unknown]
  - Hypertension [Not Recovered/Not Resolved]
  - Vertebroplasty [Unknown]
  - Sciatica [Unknown]
  - Anxiety [Unknown]
  - Rotator cuff syndrome [Unknown]
  - Spinal osteoarthritis [Unknown]
  - Spinal osteoarthritis [Unknown]
  - Chronic obstructive pulmonary disease [Not Recovered/Not Resolved]
  - Pain [Not Recovered/Not Resolved]
  - Vascular compression [Unknown]
  - Phlebitis superficial [Unknown]
  - Hyperlipidaemia [Unknown]
  - Osteopenia [Unknown]
  - Benign breast neoplasm [Unknown]
  - Hepatic lesion [Unknown]
  - Hyperadrenalism [Unknown]
  - Aortic arteriosclerosis [Unknown]
  - Diverticulum [Unknown]
  - Spinal compression fracture [Unknown]
  - Gastrointestinal haemorrhage [Unknown]
  - Haemorrhagic anaemia [Unknown]
  - Tooth extraction [Unknown]
  - Leukocytosis [Unknown]
  - Peripheral pulse decreased [Unknown]
  - Anaemia [Not Recovered/Not Resolved]
  - Tachycardia [Unknown]
  - Gastrooesophageal reflux disease [Unknown]
  - Oedema peripheral [Unknown]
  - Back pain [Unknown]
